FAERS Safety Report 13111816 (Version 1)
Quarter: 2017Q1

REPORT INFORMATION
  Report Type: Spontaneous
  Country: US (occurrence: US)
  Receive Date: 20170113
  Receipt Date: 20170113
  Transmission Date: 20170428
  Serious: No
  Sender: FDA-Public Use
  Company Number: US-AMGEN-USASP2017001791

PATIENT
  Age: 45 Year
  Sex: Female

DRUGS (1)
  1. ENBREL [Suspect]
     Active Substance: ETANERCEPT
     Indication: PRODUCT USED FOR UNKNOWN INDICATION
     Dosage: UNK
     Route: 065
     Dates: start: 2016

REACTIONS (10)
  - Condition aggravated [Unknown]
  - Chills [Unknown]
  - Asthenia [Unknown]
  - Injection site warmth [Unknown]
  - Injection site erythema [Unknown]
  - Injection site urticaria [Unknown]
  - Nausea [Unknown]
  - Tremor [Unknown]
  - Injection site pruritus [Recovering/Resolving]
  - Injection site pain [Unknown]

NARRATIVE: CASE EVENT DATE: 2016
